FAERS Safety Report 15717573 (Version 1)
Quarter: 2018Q4

REPORT INFORMATION
  Report Type: Spontaneous
  Country: US (occurrence: US)
  Receive Date: 20181129
  Receipt Date: 20181129
  Transmission Date: 20190205
  Serious: No
  Sender: FDA-Public Use
  Company Number: None

PATIENT

DRUGS (3)
  1. CEFTRIAXONE SODIUM 250MG [Suspect]
     Active Substance: CEFTRIAXONE SODIUM
     Dosage: ?          OTHER FREQUENCY:SINGLE DOSE VIAL;OTHER ROUTE:IM OR IV?
  2. CEFTRIAXONE SODIUM 500MG [Suspect]
     Active Substance: CEFTRIAXONE SODIUM
     Dosage: ?          OTHER DOSE:SINGLE USE VIAL;OTHER ROUTE:IM OR IV UE?
  3. CEFTRIAXONE SODIUM 1 GM [Suspect]
     Active Substance: CEFTRIAXONE SODIUM
     Dosage: ?          OTHER ROUTE:IM OR IV?

REACTIONS (4)
  - Product colour issue [None]
  - Product shape issue [None]
  - Product size issue [None]
  - Product label confusion [None]
